FAERS Safety Report 9293734 (Version 2)
Quarter: 2013Q3

REPORT INFORMATION
  Report Type: Spontaneous
  Country: US (occurrence: US)
  Receive Date: 20130516
  Receipt Date: 20130911
  Transmission Date: 20140515
  Serious: Yes (Hospitalization)
  Sender: FDA-Public Use
  Company Number: US-BAYER-2013-060846

PATIENT
  Age: 17 Year
  Sex: Female
  Weight: 84.35 kg

DRUGS (8)
  1. YAZ [Suspect]
     Dosage: UNK
     Dates: start: 201009, end: 201102
  2. BEYAZ [Suspect]
     Dosage: UNK
     Dates: start: 201102, end: 20110429
  3. AZITHROMYCIN [Concomitant]
  4. BENZONATATE [Concomitant]
  5. IBUPROFEN [Concomitant]
  6. ALLEGRA [Concomitant]
  7. DAYQUIL [DEXTROMET HBR,GUAIF,PARACET,PSEUDOEPH HCL] [Concomitant]
  8. Z-PAK [Concomitant]

REACTIONS (5)
  - Pulmonary embolism [Recovered/Resolved]
  - Deep vein thrombosis [None]
  - Injury [Recovered/Resolved]
  - Pain [Recovered/Resolved]
  - Pain [None]
